FAERS Safety Report 21490394 (Version 1)
Quarter: 2022Q4

REPORT INFORMATION
  Report Type: Spontaneous
  Country: US (occurrence: US)
  Receive Date: 20221021
  Receipt Date: 20221021
  Transmission Date: 20230112
  Serious: No
  Sender: FDA-Public Use
  Company Number: US-CELLTRION INC.-2022US014092

PATIENT

DRUGS (1)
  1. INFLECTRA [Suspect]
     Active Substance: INFLIXIMAB-DYYB
     Indication: Hidradenitis
     Dosage: 7.5MG/KG, CYCLIC (EVERY 6 WEEKS)
     Route: 065

REACTIONS (4)
  - Anxiety [Unknown]
  - Heart rate increased [Unknown]
  - Product dose omission issue [Unknown]
  - Off label use [Unknown]
